FAERS Safety Report 5943403-6 (Version None)
Quarter: 2008Q4

REPORT INFORMATION
  Report Type: 
  Country: None (occurrence: None)
  Receive Date: 20081106
  Receipt Date: 20081015
  Transmission Date: 20090506
  Serious: Yes (Other)
  Sender: FDA-Public Use
  Company Number: PHHY2008DE25319

PATIENT
  Age: 11 Year
  Sex: Male

DRUGS (1)
  1. RITALIN LA [Suspect]
     Dosage: 30 MG/DAY
     Route: 048
     Dates: start: 20071008

REACTIONS (1)
  - ACNE FULMINANS [None]
